FAERS Safety Report 17862330 (Version 2)
Quarter: 2020Q3

REPORT INFORMATION
  Report Type: Report from Study
  Country: US (occurrence: US)
  Receive Date: 20200604
  Receipt Date: 20200702
  Transmission Date: 20201103
  Serious: Yes (Other)
  Sender: FDA-Public Use
  Company Number: US-SA-2020SA141792

PATIENT

DRUGS (1)
  1. SARILUMAB [Suspect]
     Active Substance: SARILUMAB
     Indication: RHEUMATOID ARTHRITIS
     Dosage: 1 DF (200MG), QOW
     Route: 058
     Dates: start: 20200325

REACTIONS (9)
  - Alopecia [Not Recovered/Not Resolved]
  - Hormone receptor positive breast cancer [Not Recovered/Not Resolved]
  - Hot flush [Not Recovered/Not Resolved]
  - Stomatitis [Not Recovered/Not Resolved]
  - Frustration tolerance decreased [Unknown]
  - Product dose omission issue [Unknown]
  - Rheumatoid arthritis [Unknown]
  - Pigmentation disorder [Not Recovered/Not Resolved]
  - Headache [Unknown]

NARRATIVE: CASE EVENT DATE: 20200501
